FAERS Safety Report 4974441-8 (Version None)
Quarter: 2006Q2

REPORT INFORMATION
  Report Type: 
  Country: None (occurrence: None)
  Receive Date: 20060417
  Receipt Date: 20050401
  Transmission Date: 20061013
  Serious: Yes (Hospitalization)
  Sender: FDA-Public Use
  Company Number: DE-BRISTOL-MYERS SQUIBB COMPANY-13329172

PATIENT
  Age: 42 Year
  Sex: Male
  Weight: 70 kg

DRUGS (16)
  1. SUSTIVA [Suspect]
     Indication: HIV INFECTION
     Dates: start: 20030501, end: 20031201
  2. LAMIVUDINE + ZIDOVUDINE [Suspect]
     Indication: HIV INFECTION
     Dates: start: 20030501, end: 20030801
  3. ABACAVIR [Suspect]
     Indication: HIV INFECTION
     Dates: start: 20030801, end: 20040901
  4. LAMIVUDINE [Suspect]
     Indication: HIV INFECTION
     Dates: start: 20030801, end: 20031201
  5. LOPINAVIR [Suspect]
     Indication: HIV INFECTION
     Dates: start: 20040101, end: 20040901
  6. ZIDOVUDINE [Suspect]
     Indication: HIV INFECTION
     Dates: start: 20040101, end: 20040901
  7. SODIUM [Concomitant]
  8. THIAMINE HCL [Concomitant]
  9. MULTI-VITAMIN [Concomitant]
     Indication: POLYNEUROPATHY
  10. AMPHOTERICIN B [Concomitant]
     Route: 048
  11. CEFTRIAXONE [Concomitant]
     Indication: SYPHILIS
     Route: 042
     Dates: start: 20030301, end: 20030601
  12. PENICILLIN G [Concomitant]
     Indication: SYPHILIS
     Dates: start: 20030501, end: 20030601
  13. PANTOPRAZOLE [Concomitant]
     Dates: start: 20030801
  14. FOLIC ACID [Concomitant]
     Indication: ANAEMIA MEGALOBLASTIC
     Dates: start: 20040301
  15. LOPERAMIDE [Concomitant]
     Indication: DIARRHOEA
     Dates: start: 20040301
  16. OPIUM [Concomitant]
     Indication: DIARRHOEA
     Dates: start: 20040601

REACTIONS (32)
  - ALCOHOLISM [None]
  - ANAEMIA MEGALOBLASTIC [None]
  - ASTHENIA [None]
  - BALANCE DISORDER [None]
  - BREATH SOUNDS ABNORMAL [None]
  - C-REACTIVE PROTEIN INCREASED [None]
  - DIAPHRAGMATIC DISORDER [None]
  - DIARRHOEA [None]
  - DYSPNOEA [None]
  - ECZEMA [None]
  - GAMMA-GLUTAMYLTRANSFERASE INCREASED [None]
  - GASTRIC ULCER [None]
  - GASTROINTESTINAL HAEMORRHAGE [None]
  - GASTROOESOPHAGEAL REFLUX DISEASE [None]
  - GENERAL PHYSICAL HEALTH DETERIORATION [None]
  - HYPOKALAEMIA [None]
  - HYPONATRAEMIA [None]
  - HYPOTENSION [None]
  - LIVER PALPABLE SUBCOSTAL [None]
  - LYMPHADENOPATHY [None]
  - NAUSEA [None]
  - OESOPHAGEAL STENOSIS [None]
  - PEDAL PULSE ABSENT [None]
  - POSITIVE ROMBERGISM [None]
  - PROTHROMBIN TIME PROLONGED [None]
  - PULMONARY PERCUSSION TEST ABNORMALITY [None]
  - SEBORRHOEIC DERMATITIS [None]
  - TACHYCARDIA [None]
  - TRANSAMINASES INCREASED [None]
  - VERTIGO [None]
  - VOMITING [None]
  - WALKING DISABILITY [None]
